FAERS Safety Report 6700831-9 (Version None)
Quarter: 2010Q2

REPORT INFORMATION
  Report Type: 
  Country: None (occurrence: None)
  Receive Date: 20100426
  Receipt Date: 20100416
  Transmission Date: 20101027
  Serious: Yes (Hospitalization)
  Sender: FDA-Public Use
  Company Number: URSO-2010-041

PATIENT
  Sex: Female

DRUGS (7)
  1. URSODIOL [Suspect]
     Indication: PROPHYLAXIS
     Dates: start: 20020501
  2. URSODIOL [Suspect]
     Indication: VENOOCCLUSIVE DISEASE
     Dates: start: 20020501
  3. HEPARIN [Concomitant]
  4. TACROLIMUS [Concomitant]
  5. METHOTREXATE [Concomitant]
  6. GEMTUZUMAB OZOGAMICIN [Concomitant]
  7. PREDNISOLONE [Concomitant]

REACTIONS (12)
  - ABDOMINAL PAIN UPPER [None]
  - ALANINE AMINOTRANSFERASE INCREASED [None]
  - ASPARTATE AMINOTRANSFERASE INCREASED [None]
  - BLOOD BILIRUBIN INCREASED [None]
  - BONE MARROW FAILURE [None]
  - CHRONIC GRAFT VERSUS HOST DISEASE [None]
  - HAEMOGLOBIN DECREASED [None]
  - HEPATOMEGALY [None]
  - PANCYTOPENIA [None]
  - PYREXIA [None]
  - VENOOCCLUSIVE DISEASE [None]
  - WEIGHT INCREASED [None]
